FAERS Safety Report 12508860 (Version 1)
Quarter: 2016Q2

REPORT INFORMATION
  Report Type: Spontaneous
  Country: GB (occurrence: GB)
  Receive Date: 20160629
  Receipt Date: 20160629
  Transmission Date: 20160815
  Serious: Yes (Life-Threatening)
  Sender: FDA-Public Use
  Company Number: GB-PFIZER INC-2016317359

PATIENT
  Age: 17 Year
  Sex: Male
  Weight: 101 kg

DRUGS (5)
  1. CETIRIZINE [Concomitant]
     Active Substance: CETIRIZINE HYDROCHLORIDE
     Dosage: UNK
  2. ATRACURIUM BESILATE [Suspect]
     Active Substance: ATRACURIUM BESYLATE
     Indication: HYPOTONIA
     Dosage: 50 MG, UNK
     Route: 042
     Dates: start: 20160614
  3. FENTANYL. [Suspect]
     Active Substance: FENTANYL
     Indication: ANALGESIC THERAPY
     Dosage: 100 UG, UNK
     Route: 042
     Dates: start: 20160614
  4. PROPOFOL. [Suspect]
     Active Substance: PROPOFOL
     Dosage: 300 MG, UNK
     Route: 042
     Dates: start: 20160614
  5. SALBUTAMOL [Concomitant]
     Active Substance: ALBUTEROL
     Dosage: UNK

REACTIONS (2)
  - Bronchospasm [Recovering/Resolving]
  - Rash generalised [Recovering/Resolving]

NARRATIVE: CASE EVENT DATE: 20160614
